FAERS Safety Report 22285187 (Version 1)
Quarter: 2023Q2

REPORT INFORMATION
  Report Type: Spontaneous
  Country: CN (occurrence: CN)
  Receive Date: 20230504
  Receipt Date: 20230504
  Transmission Date: 20230722
  Serious: Yes (Hospitalization, Other)
  Sender: FDA-Public Use
  Company Number: CN-KYOWAKIRIN-2023BKK006471

PATIENT

DRUGS (1)
  1. TOREMIFENE [Suspect]
     Active Substance: TOREMIFENE
     Indication: Breast cancer
     Dosage: 60 MG, QD(1 D)
     Route: 048
     Dates: start: 20221229, end: 20230321

REACTIONS (3)
  - Myelosuppression [Recovering/Resolving]
  - Decreased appetite [Recovering/Resolving]
  - Viral infection [Recovering/Resolving]

NARRATIVE: CASE EVENT DATE: 20230312
